FAERS Safety Report 4660323-8 (Version None)
Quarter: 2005Q2

REPORT INFORMATION
  Report Type: 
  Country: None (occurrence: None)
  Receive Date: 20050427
  Receipt Date: 20050201
  Transmission Date: 20051028
  Serious: No
  Sender: FDA-Public Use
  Company Number: 211624

PATIENT
  Age: 50 Year
  Sex: Female
  Weight: 122.9 kg

DRUGS (13)
  1. XOLAIR [Suspect]
     Indication: ASTHMA
     Dosage: 375, QW, SUBCUTANEOUS
     Route: 058
     Dates: start: 20050107
  2. ALLEGRA [Concomitant]
  3. MAXZIDE [Concomitant]
  4. GLYBURIDE [Concomitant]
  5. GLUCOPHAGE [Concomitant]
  6. MICRO-K (POTASSIUM CHLORIDE) [Concomitant]
  7. CLONIDINE [Concomitant]
  8. PROTONIX [Concomitant]
  9. SINGULAIR [Concomitant]
  10. ATARAX [Concomitant]
  11. ZOPRIN (ASPIRIN) [Concomitant]
  12. CLARINEX [Concomitant]
  13. ADVAIR (FLUTICASONE PROPIONATE, SALMETEROL XINAFOATE) [Concomitant]

REACTIONS (1)
  - URTICARIA [None]
